FAERS Safety Report 9548502 (Version 1)
Quarter: 2013Q3

REPORT INFORMATION
  Report Type: Spontaneous
  Country: US (occurrence: US)
  Receive Date: 20130924
  Receipt Date: 20130924
  Transmission Date: 20140515
  Serious: No
  Sender: FDA-Public Use
  Company Number: US-PFIZER INC-2013271750

PATIENT
  Age: 51 Year
  Sex: Female
  Weight: 47 kg

DRUGS (2)
  1. CHANTIX [Suspect]
     Indication: SMOKING CESSATION THERAPY
     Dosage: 0.5 MG, SINGLE
     Route: 048
     Dates: start: 20130914, end: 20130914
  2. METHIMAZOLE [Concomitant]
     Indication: HYPERTHYROIDISM
     Dosage: 5 MG, DAILY
     Dates: start: 2008

REACTIONS (1)
  - Palpitations [Recovered/Resolved]
